FAERS Safety Report 8567819-7 (Version None)
Quarter: 2012Q3

REPORT INFORMATION
  Report Type: 
  Country: None (occurrence: None)
  Receive Date: 20120803
  Receipt Date: 20120724
  Transmission Date: 20120928
  Serious: Yes (Hospitalization)
  Sender: FDA-Public Use
  Company Number: US-PFIZER INC-2012176321

PATIENT
  Sex: Male
  Weight: 78.095 kg

DRUGS (6)
  1. SYNTHROID [Concomitant]
     Dosage: 175 UG, 2X/WEEK
     Dates: start: 19990101
  2. SIMVASTATIN [Concomitant]
     Dosage: UNK
  3. SUNITINIB MALATE [Suspect]
     Indication: THYROID CANCER
     Dosage: 37.5 MG, 1X/DAY
     Route: 048
     Dates: start: 20120707, end: 20120718
  4. HYDROCORTISONE [Concomitant]
     Dosage: 100 MG, 1X/DAY
     Dates: start: 20120627
  5. SYNTHROID [Concomitant]
     Dosage: 150 UG, 5 TIMES A WEEK
     Dates: start: 19990101
  6. LEVETIRACETAM [Concomitant]
     Dosage: 750 MG, LONG ACTING, 1X/DAY
     Dates: start: 20120403

REACTIONS (1)
  - INTESTINAL OBSTRUCTION [None]
